FAERS Safety Report 11402550 (Version 1)
Quarter: 2015Q3

REPORT INFORMATION
  Report Type: Spontaneous
  Country: US (occurrence: US)
  Receive Date: 20150821
  Receipt Date: 20150821
  Transmission Date: 20151125
  Serious: No
  Sender: FDA-Public Use
  Company Number: US-ROCHE-1288934

PATIENT
  Sex: Female

DRUGS (4)
  1. PEGASYS [Suspect]
     Active Substance: PEGINTERFERON ALFA-2A
     Indication: CHRONIC HEPATITIS C
     Dosage: PROCLICK INJECTIONS
     Route: 058
     Dates: start: 20131002
  2. COPEGUS [Suspect]
     Active Substance: RIBAVIRIN
     Indication: CHRONIC HEPATITIS C
     Route: 048
     Dates: start: 20131002
  3. HYDROXYZINE [Concomitant]
     Active Substance: HYDROXYZINE\HYDROXYZINE HYDROCHLORIDE
     Indication: INSOMNIA
  4. BUSPAR [Concomitant]
     Active Substance: BUSPIRONE HYDROCHLORIDE
     Indication: ANXIETY
     Dosage: PRN
     Route: 065

REACTIONS (9)
  - Feeling abnormal [Unknown]
  - Fatigue [Unknown]
  - Cold sweat [Unknown]
  - Memory impairment [Unknown]
  - Pallor [Unknown]
  - Dyspnoea [Unknown]
  - Depression [Unknown]
  - Menorrhagia [Unknown]
  - Feeling hot [Unknown]
